FAERS Safety Report 6943100-4 (Version None)
Quarter: 2010Q3

REPORT INFORMATION
  Report Type: 
  Country: None (occurrence: None)
  Receive Date: 20100825
  Receipt Date: 20100825
  Transmission Date: 20110219
  Serious: Yes (Hospitalization)
  Sender: FDA-Public Use
  Company Number: None

PATIENT
  Age: 78 Year
  Sex: Male
  Weight: 78 kg

DRUGS (2)
  1. HEPARIN [Suspect]
     Dosage: 5000 UNITS BID SQ
     Route: 058
     Dates: start: 20100727, end: 20100803
  2. ASPIRIN [Suspect]
     Indication: CEREBROVASCULAR ACCIDENT PROPHYLAXIS
     Dosage: 81 MG EVERY DAY OTHER
     Route: 050
     Dates: start: 20100802, end: 20100803

REACTIONS (2)
  - ANAEMIA [None]
  - GASTRIC HAEMORRHAGE [None]
